FAERS Safety Report 9344959 (Version 2)
Quarter: 2014Q2

REPORT INFORMATION
  Report Type: Spontaneous
  Country: US (occurrence: US)
  Receive Date: 20130612
  Receipt Date: 20140507
  Transmission Date: 20141212
  Serious: Yes (Hospitalization, Disabling, Other)
  Sender: FDA-Public Use
  Company Number: US-ASTRAZENECA-2013SE40075

PATIENT
  Age: 47 Year
  Sex: Male

DRUGS (12)
  1. NEXIUM [Suspect]
     Indication: GASTROOESOPHAGEAL REFLUX DISEASE
     Route: 048
  2. NEXIUM [Suspect]
     Indication: GASTROOESOPHAGEAL REFLUX DISEASE
     Route: 048
     Dates: start: 2007, end: 2010
  3. NEXIUM [Suspect]
     Indication: GASTROOESOPHAGEAL REFLUX DISEASE
     Route: 048
     Dates: start: 20080123
  4. PREVACID [Concomitant]
     Indication: GASTROOESOPHAGEAL REFLUX DISEASE
     Dates: start: 2007
  5. RANITIDINE [Concomitant]
     Indication: GASTROOESOPHAGEAL REFLUX DISEASE
     Dates: start: 2006
  6. ALKA SELTZER [Concomitant]
     Indication: NASOPHARYNGITIS
  7. ALKA SELTZER [Concomitant]
     Indication: INFLUENZA
  8. EXFORGE [Concomitant]
     Indication: HYPERTENSION
  9. LISINOPRIL [Concomitant]
     Indication: HYPERTENSION
  10. ADVIL [Concomitant]
  11. ADVAIR [Concomitant]
     Dosage: AS NEEDED
     Dates: start: 20080916
  12. ALBUTEROL [Concomitant]
     Dosage: AS NEEDED

REACTIONS (9)
  - Lower limb fracture [Unknown]
  - Fall [Unknown]
  - Nerve injury [Unknown]
  - Ankle fracture [Unknown]
  - Fibula fracture [Unknown]
  - Haemarthrosis [Unknown]
  - Tibia fracture [Unknown]
  - Osteoporosis [Unknown]
  - Tarsal tunnel syndrome [Unknown]
